FAERS Safety Report 9163527 (Version 3)
Quarter: 2013Q2

REPORT INFORMATION
  Report Type: Spontaneous
  Country: DE (occurrence: DE)
  Receive Date: 20130314
  Receipt Date: 20130531
  Transmission Date: 20140414
  Serious: Yes (Hospitalization, Other)
  Sender: FDA-Public Use
  Company Number: DE-AMGEN-DEUSP2013014698

PATIENT
  Age: 64 Year
  Sex: Male

DRUGS (19)
  1. XGEVA [Suspect]
     Indication: PROSTATE CANCER METASTATIC
     Dosage: 120 MG, QMO
     Dates: start: 201108, end: 201209
  2. PREDNISOLONE [Concomitant]
     Indication: LYMPHOMA
     Dosage: 7.5 MG, UNK
     Dates: start: 201006, end: 201209
  3. PREDNISOLONE [Concomitant]
     Indication: HAEMOLYSIS
     Dosage: 5 MG, UNK
  4. CLEXANE [Concomitant]
     Dosage: 2
     Route: 058
     Dates: start: 201208, end: 201209
  5. FLUTAMID [Concomitant]
     Dosage: 3
     Dates: start: 201001, end: 201108
  6. EXJADE [Concomitant]
     Indication: IRON OVERLOAD
     Dosage: 500 MG, UNK
     Route: 048
     Dates: start: 201103, end: 201209
  7. OMAPRIN [Concomitant]
     Dosage: 20
  8. MACROGOL [Concomitant]
     Dosage: BAGS
  9. CALCIUM D3                         /00944201/ [Concomitant]
  10. ARCOXIA [Concomitant]
     Dosage: 60 MG, UNK
  11. METAMIZOLE [Concomitant]
     Dosage: 4*30GTT
  12. PALLADON [Concomitant]
     Dosage: 4 MG, QD
  13. ALLOPURINOL [Concomitant]
     Dosage: 300
  14. TRAMAL [Concomitant]
     Dosage: 100 MG, UNK
     Dates: start: 20120806
  15. AMARYL [Concomitant]
     Dosage: 2 MG, UNK
  16. BICALUTAMIDE [Concomitant]
     Dosage: 150
  17. ELIGARD [Concomitant]
  18. AMINEURIN [Concomitant]
     Dosage: 10
  19. MCP                                /00041901/ [Concomitant]

REACTIONS (11)
  - Osteonecrosis [Recovered/Resolved]
  - Pelvic venous thrombosis [Unknown]
  - Venous thrombosis [Unknown]
  - Coombs negative haemolytic anaemia [Unknown]
  - Splenomegaly [Unknown]
  - Implant site abscess [Unknown]
  - Diabetes mellitus [Unknown]
  - Atypical femur fracture [Recovered/Resolved]
  - Hepatic steatosis [Unknown]
  - Oedema peripheral [Unknown]
  - Lipoma [Unknown]
